FAERS Safety Report 19143482 (Version 3)
Quarter: 2021Q2

REPORT INFORMATION
  Report Type: Spontaneous
  Country: JP (occurrence: JP)
  Receive Date: 20210415
  Receipt Date: 20210521
  Transmission Date: 20210717
  Serious: Yes (Hospitalization)
  Sender: FDA-Public Use
  Company Number: JP-DSJP-DSJ-2021-108220

PATIENT
  Age: 77 Year
  Sex: Female
  Weight: 46 kg

DRUGS (14)
  1. TRAZENTA [Concomitant]
     Active Substance: LINAGLIPTIN
     Dosage: 5MG/DAY
     Route: 048
     Dates: end: 20210315
  2. FEBURIC [Concomitant]
     Active Substance: FEBUXOSTAT
     Dosage: 10MG/DAY
     Route: 048
     Dates: end: 20210315
  3. BISOPROLOL                         /00802602/ [Concomitant]
     Active Substance: BISOPROLOL
     Dosage: 2.5MG/DAY
     Route: 048
  4. CEFTRIAXONE SODIUM. [Concomitant]
     Active Substance: CEFTRIAXONE SODIUM
     Dosage: 1 G, QD
     Route: 042
     Dates: start: 20210312, end: 20210314
  5. PITAVASTATIN. [Concomitant]
     Active Substance: PITAVASTATIN CALCIUM
     Dosage: 2MG/DAY
     Route: 048
     Dates: end: 20210315
  6. BAYASPIRIN [Concomitant]
     Active Substance: ASPIRIN
     Dosage: 100 MG, QD
     Route: 048
     Dates: start: 20210305
  7. EFIENT [Suspect]
     Active Substance: PRASUGREL HYDROCHLORIDE
     Indication: ACUTE MYOCARDIAL INFARCTION
     Dosage: 3.75 MG, QD
     Route: 048
     Dates: start: 20210305
  8. SAMSCA [Suspect]
     Active Substance: TOLVAPTAN
     Dosage: 0.35 MG, QD
     Route: 048
     Dates: start: 20210309, end: 20210315
  9. TAKECAB [Concomitant]
     Active Substance: VONOPRAZAN FUMARATE
     Dosage: 10MG/DAY
     Route: 048
     Dates: end: 20210315
  10. POLAPREZINC [Concomitant]
     Active Substance: POLAPREZINC
     Dosage: 1.0G/DAY
     Route: 048
     Dates: end: 20210315
  11. VOGLIBOSE [Concomitant]
     Active Substance: VOGLIBOSE
     Dosage: 0.4MG/DAY
     Route: 048
     Dates: end: 20210315
  12. FUROSEMIDE. [Concomitant]
     Active Substance: FUROSEMIDE
     Dosage: 40MG/DAY
     Route: 048
     Dates: end: 20210315
  13. HEPARIN CA [Suspect]
     Active Substance: HEPARIN CALCIUM
     Dosage: 0.4?0.7ML/H
     Route: 042
     Dates: start: 20210304, end: 20210306
  14. HANP [Concomitant]
     Active Substance: CARPERITIDE
     Dosage: UNK
     Route: 065

REACTIONS (3)
  - Platelet count decreased [Recovering/Resolving]
  - Hepatic function abnormal [Recovered/Resolved]
  - Pyrexia [Recovered/Resolved]

NARRATIVE: CASE EVENT DATE: 20210314
